FAERS Safety Report 14271343 (Version 1)
Quarter: 2017Q4

REPORT INFORMATION
  Report Type: Spontaneous
  Country: US (occurrence: US)
  Receive Date: 20171211
  Receipt Date: 20171211
  Transmission Date: 20180321
  Serious: No
  Sender: FDA-Public Use
  Company Number: US-PFIZER INC-2017524526

PATIENT
  Sex: Male

DRUGS (3)
  1. PROGRAF [Suspect]
     Active Substance: TACROLIMUS\TACROLIMUS ANHYDROUS
  2. MYFORTIC [Suspect]
     Active Substance: MYCOPHENOLATE SODIUM
  3. MEDROL [Suspect]
     Active Substance: METHYLPREDNISOLONE

REACTIONS (1)
  - Pain [Unknown]
